FAERS Safety Report 22964968 (Version 3)
Quarter: 2023Q4

REPORT INFORMATION
  Report Type: Report from Study
  Country: GB (occurrence: GB)
  Receive Date: 20230921
  Receipt Date: 20231026
  Transmission Date: 20240110
  Serious: Yes (Other)
  Sender: FDA-Public Use
  Company Number: GB-SANDOZ-SDZ2023GB030557

PATIENT
  Sex: Female

DRUGS (1)
  1. HYRIMOZ [Suspect]
     Active Substance: ADALIMUMAB-ADAZ
     Indication: Colitis ulcerative
     Dosage: 40 MG, Q2W (EOW)
     Route: 058
     Dates: start: 20230728

REACTIONS (4)
  - Bradycardia [Unknown]
  - Mood swings [Unknown]
  - Cardiac murmur [Unknown]
  - Peripheral swelling [Unknown]
